FAERS Safety Report 22652914 (Version 1)
Quarter: 2023Q2

REPORT INFORMATION
  Report Type: Spontaneous
  Country: US (occurrence: US)
  Receive Date: 20230629
  Receipt Date: 20230629
  Transmission Date: 20230721
  Serious: Yes (Hospitalization)
  Sender: FDA-Public Use
  Company Number: US-RECORDATI-2023004114

PATIENT

DRUGS (1)
  1. SIGNIFOR LAR [Suspect]
     Active Substance: PASIREOTIDE PAMOATE
     Indication: Product used for unknown indication
     Dosage: 20 GRAM, QM (2ND DOSE ON HOLD, DUE TOT THE HOSPITALIZATION)
     Dates: start: 202303

REACTIONS (2)
  - Asthenia [Unknown]
  - Colitis [Unknown]

NARRATIVE: CASE EVENT DATE: 20230101
